FAERS Safety Report 4570751-7 (Version None)
Quarter: 2005Q1

REPORT INFORMATION
  Report Type: 
  Country: None (occurrence: None)
  Receive Date: 20050202
  Receipt Date: 20050117
  Transmission Date: 20050727
  Serious: Yes (Hospitalization)
  Sender: FDA-Public Use
  Company Number: DE_041214965

PATIENT
  Age: 69 Year
  Sex: Male
  Weight: 73 kg

DRUGS (5)
  1. GEMZAR [Suspect]
     Indication: NON-SMALL CELL LUNG CANCER
     Dosage: 1900 MG
     Dates: start: 20041021, end: 20041209
  2. DOCETAXEL [Suspect]
     Indication: NON-SMALL CELL LUNG CANCER
     Dosage: 140 MG
     Dates: start: 20041028, end: 20041209
  3. RANITIDIN              (RANITIDINE HYDROCHLORIDE) [Concomitant]
  4. DEXAMETHASONE [Concomitant]
  5. ENOXAPARIN SODIUM [Concomitant]

REACTIONS (8)
  - CONDITION AGGRAVATED [None]
  - CONFUSIONAL STATE [None]
  - DISORIENTATION [None]
  - EMPHYSEMA [None]
  - NON-SMALL CELL LUNG CANCER [None]
  - PERSONALITY CHANGE [None]
  - PNEUMONIA [None]
  - RESPIRATORY FAILURE [None]
